FAERS Safety Report 25553674 (Version 5)
Quarter: 2025Q4

REPORT INFORMATION
  Report Type: Report from Study
  Country: GB (occurrence: GB)
  Receive Date: 20250715
  Receipt Date: 20251231
  Transmission Date: 20260118
  Serious: Yes (Other)
  Sender: NOVARTIS
  Company Number: GB-002147023-NVSC2025GB073828

PATIENT
  Age: 57 Year
  Sex: Female

DRUGS (1)
  1. COSENTYX [Suspect]
     Active Substance: SECUKINUMAB
     Indication: Psoriatic arthropathy
     Dosage: 300 MG, QMO
     Route: 058

REACTIONS (14)
  - Sepsis [Unknown]
  - Illness [Unknown]
  - Arthralgia [Unknown]
  - Malaise [Unknown]
  - Diarrhoea [Unknown]
  - Poor quality sleep [Unknown]
  - Finger deformity [Unknown]
  - Confusional state [Unknown]
  - Injection site discharge [Unknown]
  - Needle issue [Unknown]
  - Circumstance or information capable of leading to medication error [Unknown]
  - Device defective [Unknown]
  - Drug dose omission by device [Unknown]
  - Accidental exposure to product [Unknown]

NARRATIVE: CASE EVENT DATE: 20250821
